FAERS Safety Report 21341821 (Version 1)
Quarter: 2022Q3

REPORT INFORMATION
  Report Type: Spontaneous
  Country: US (occurrence: None)
  Receive Date: 20220915
  Receipt Date: 20220915
  Transmission Date: 20221026
  Serious: No
  Sender: FDA-Public Use
  Company Number: None

PATIENT
  Age: 50 Year
  Sex: Female
  Weight: 81 kg

DRUGS (2)
  1. LEVOTHYROXINE SODIUM [Suspect]
     Active Substance: LEVOTHYROXINE SODIUM
     Indication: Hypothyroidism
     Route: 048
     Dates: start: 20220725, end: 20220912
  2. Levothyroxine: manufacturer by Amneal and distributed by Walgreens pha [Concomitant]

REACTIONS (4)
  - Condition aggravated [None]
  - Musculoskeletal stiffness [None]
  - Joint stiffness [None]
  - Product substitution issue [None]

NARRATIVE: CASE EVENT DATE: 20220906
